FAERS Safety Report 5948496-8 (Version None)
Quarter: 2008Q4

REPORT INFORMATION
  Report Type: 
  Country: None (occurrence: None)
  Receive Date: 20081111
  Receipt Date: 20081028
  Transmission Date: 20090506
  Serious: Yes (Hospitalization, Disabling)
  Sender: FDA-Public Use
  Company Number: B0543873A

PATIENT
  Age: 78 Year
  Sex: Female

DRUGS (3)
  1. SERETIDE [Suspect]
     Route: 055
     Dates: start: 20080804
  2. TAVANIC [Suspect]
     Dosage: 1G PER DAY
     Route: 048
     Dates: start: 20080804, end: 20080807
  3. PREDNISOLONE [Suspect]
     Route: 048
     Dates: start: 20080804

REACTIONS (1)
  - TENDON RUPTURE [None]
